FAERS Safety Report 13582633 (Version 2)
Quarter: 2017Q3

REPORT INFORMATION
  Report Type: Other
  Country: US (occurrence: US)
  Receive Date: 20170525
  Receipt Date: 20170924
  Transmission Date: 20171127
  Serious: No
  Sender: FDA-Public Use
  Company Number: US-APOTEX-2017AP010686

PATIENT
  Sex: Male

DRUGS (1)
  1. CLARISPRAY NASAL ALLERGY [Suspect]
     Active Substance: FLUTICASONE PROPIONATE
     Indication: PRODUCT USED FOR UNKNOWN INDICATION
     Dosage: UNK
     Route: 045

REACTIONS (1)
  - Rhinalgia [Unknown]
